FAERS Safety Report 26181083 (Version 1)
Quarter: 2025Q4

REPORT INFORMATION
  Report Type: Report from Study
  Country: CA (occurrence: CA)
  Receive Date: 20251221
  Receipt Date: 20251221
  Transmission Date: 20260118
  Serious: Yes (Other)
  Sender: TAKEDA
  Company Number: CA-TAKEDA-2023TUS068146

PATIENT
  Age: 65 Year
  Sex: Male

DRUGS (11)
  1. VEDOLIZUMAB [Suspect]
     Active Substance: VEDOLIZUMAB
     Indication: Crohn^s disease
     Dosage: 300 MILLIGRAM
  2. WARFARIN [Concomitant]
     Active Substance: WARFARIN
     Dosage: 2 MILLIGRAM
  3. BISOPROLOL [Concomitant]
     Active Substance: BISOPROLOL
     Dosage: 7.5 MILLIGRAM
  4. ENTRESTO [Concomitant]
     Active Substance: SACUBITRIL\VALSARTAN
     Dosage: 97.2 MILLIGRAM
  5. PANTOPRAZOLE [Concomitant]
     Active Substance: PANTOPRAZOLE
     Dosage: 40 MILLIGRAM
  6. FUROSEMIDE [Concomitant]
     Active Substance: FUROSEMIDE
     Dosage: 40 MILLIGRAM
  7. ANORO ELLIPTA [Concomitant]
     Active Substance: UMECLIDINIUM BROMIDE\VILANTEROL TRIFENATATE
     Dosage: 62.5 MICROGRAM
  8. SPIRONOLACTONE [Concomitant]
     Active Substance: SPIRONOLACTONE
     Dosage: 25 MILLIGRAM
  9. MAGNESIUM [Concomitant]
     Active Substance: MAGNESIUM
     Dosage: 100 MILLIGRAM
  10. DAPAGLIFLOZIN [Concomitant]
     Active Substance: DAPAGLIFLOZIN
     Dosage: UNK
  11. AMIODARONE [Concomitant]
     Active Substance: AMIODARONE
     Dosage: 200 MILLIGRAM

REACTIONS (9)
  - Crohn^s disease [Unknown]
  - Drug ineffective [Unknown]
  - Diarrhoea [Unknown]
  - Frequent bowel movements [Unknown]
  - Social problem [Unknown]
  - Impaired work ability [Unknown]
  - Faeces soft [Unknown]
  - Malaise [Unknown]
  - Abdominal pain [Unknown]
